FAERS Safety Report 6198147-5 (Version None)
Quarter: 2009Q2

REPORT INFORMATION
  Report Type: 
  Country: None (occurrence: None)
  Receive Date: 20090521
  Receipt Date: 20090511
  Transmission Date: 20091009
  Serious: Yes (Death, Hospitalization, Other)
  Sender: FDA-Public Use
  Company Number: DE-ROCHE-485875

PATIENT
  Age: 37 Year
  Sex: Female
  Weight: 62.6 kg

DRUGS (18)
  1. CAPECITABINE [Suspect]
     Route: 048
     Dates: start: 20070209, end: 20070223
  2. DOXORUBICIN HYDROCHLORIDE [Concomitant]
  3. FORTECORTIN [Concomitant]
     Indication: IMMUNOSUPPRESSION
     Dosage: RECEIVED 8 MG DAILY FROM 2 MARCH 2007 TO 3 MARCH 2007.
     Dates: start: 20070323, end: 20070324
  4. LYRICA [Concomitant]
     Indication: PAIN
     Dosage: OTHER INDICATION: NEUROPATHY.
     Dates: start: 20070324, end: 20070324
  5. MAGNESIUM VERLA N [Concomitant]
     Indication: PAIN
     Dates: start: 20070323, end: 20070324
  6. SAROTEN [Concomitant]
     Indication: DEPRESSION
     Dates: start: 20070323, end: 20070324
  7. HALDOL [Concomitant]
     Indication: PAIN
     Dates: start: 20070323, end: 20070324
  8. NOVALGINE [Concomitant]
     Indication: PAIN
     Dates: start: 20070323, end: 20070324
  9. DURAGESIC-100 [Concomitant]
     Indication: PAIN
     Dosage: DOSING AMOUNT: 200.
     Dates: start: 20070323, end: 20070323
  10. ACTIQ [Concomitant]
     Indication: PAIN
     Dates: start: 20070209, end: 20070427
  11. 1 CONCOMITANT DRUG [Concomitant]
     Indication: NAUSEA
     Dosage: DRUG NAME: VORNEX DRAGEES. RECEIVED ON 23 MAR 07 ALSO.
     Dates: start: 20070302, end: 20070303
  12. ZOMETA [Concomitant]
     Indication: METASTASES TO BONE
     Dates: start: 20070302, end: 20070303
  13. METOCLOPRAMIDE [Concomitant]
     Indication: NAUSEA
     Dates: start: 20070302, end: 20070303
  14. IBUPROFEN [Concomitant]
     Indication: PAIN
     Dates: start: 20070302, end: 20070303
  15. TAVOR [Concomitant]
     Indication: INSOMNIA
     Dates: start: 20070302, end: 20070303
  16. 1 CONCOMITANT DRUG [Concomitant]
     Indication: PROPHYLAXIS
     Dosage: DRUG NAME: PARDONOL
     Dates: start: 20070209, end: 20070427
  17. FRAGMIN P FORTE [Concomitant]
     Indication: PROPHYLAXIS
     Dosage: DOSAGE: 2500 IE DAILY
     Dates: start: 20070123, end: 20070401
  18. LAXOBERAL [Concomitant]
     Indication: CONSTIPATION
     Dates: start: 20070302, end: 20070302

REACTIONS (3)
  - DISEASE PROGRESSION [None]
  - HAEMOGLOBIN [None]
  - NEUROPATHY PERIPHERAL [None]
